FAERS Safety Report 4732530-7 (Version None)
Quarter: 2005Q3

REPORT INFORMATION
  Report Type: 
  Country: None (occurrence: None)
  Receive Date: 20050803
  Receipt Date: 20050324
  Transmission Date: 20060218
  Serious: Yes (Other)
  Sender: FDA-Public Use
  Company Number: SER/8/3899

PATIENT
  Sex: Female

DRUGS (1)
  1. PAROXETINE [Suspect]
     Dosage: 20MG PER DAY
     Dates: start: 20000925

REACTIONS (11)
  - AGGRESSION [None]
  - ALOPECIA [None]
  - DEPRESSED MOOD [None]
  - ILL-DEFINED DISORDER [None]
  - IMPULSIVE BEHAVIOUR [None]
  - INSOMNIA [None]
  - IRRITABILITY [None]
  - NIGHTMARE [None]
  - SOMNOLENCE [None]
  - SUICIDAL IDEATION [None]
  - SUICIDE ATTEMPT [None]
